FAERS Safety Report 9470201 (Version 4)
Quarter: 2014Q2

REPORT INFORMATION
  Report Type: Report from Study
  Country: FR (occurrence: FR)
  Receive Date: 20130822
  Receipt Date: 20140414
  Transmission Date: 20141212
  Serious: Yes (Other)
  Sender: FDA-Public Use
  Company Number: FR-SANOFI-AVENTIS-2013SA081761

PATIENT
  Age: 67 Year
  Sex: Male

DRUGS (17)
  1. AFLIBERCEPT [Suspect]
     Indication: COLORECTAL CANCER METASTATIC
     Route: 042
     Dates: start: 20130528, end: 20130528
  2. AFLIBERCEPT [Suspect]
     Indication: COLORECTAL CANCER METASTATIC
     Route: 042
     Dates: start: 20130618, end: 20130618
  3. IRINOTECAN [Suspect]
     Indication: COLORECTAL CANCER METASTATIC
     Route: 042
     Dates: start: 20130528, end: 20130528
  4. IRINOTECAN [Suspect]
     Indication: COLORECTAL CANCER METASTATIC
     Route: 042
     Dates: start: 20130618, end: 20130618
  5. 5-FU [Suspect]
     Indication: COLORECTAL CANCER METASTATIC
     Route: 040
     Dates: start: 20130528, end: 20130528
  6. 5-FU [Suspect]
     Indication: COLORECTAL CANCER METASTATIC
     Route: 041
     Dates: start: 20130528, end: 20130528
  7. 5-FU [Suspect]
     Indication: COLORECTAL CANCER METASTATIC
     Route: 040
     Dates: start: 20130618, end: 20130618
  8. 5-FU [Suspect]
     Indication: COLORECTAL CANCER METASTATIC
     Route: 041
     Dates: start: 20130618, end: 20130618
  9. LEUCOVORIN [Suspect]
     Indication: COLORECTAL CANCER METASTATIC
     Route: 042
     Dates: start: 20130528, end: 20130528
  10. LEUCOVORIN [Suspect]
     Indication: COLORECTAL CANCER METASTATIC
     Route: 042
     Dates: start: 20130618, end: 20130618
  11. ACE INHIBITOR NOS [Concomitant]
     Dates: start: 2012, end: 20130611
  12. CALCIUM CHANNEL BLOCKERS [Concomitant]
     Dates: start: 20130612
  13. FUROSEMIDE [Concomitant]
     Dates: start: 20130612
  14. CORTICOSTEROIDS [Concomitant]
     Dates: start: 20130528
  15. CORTICOSTEROIDS [Concomitant]
     Dates: start: 20130528, end: 20130528
  16. LOPERAMIDE [Concomitant]
     Dates: start: 20130528
  17. METOCLOPRAMIDE [Concomitant]
     Dates: start: 20130528

REACTIONS (1)
  - Priapism [Recovered/Resolved]
